FAERS Safety Report 21114789 (Version 1)
Quarter: 2022Q3

REPORT INFORMATION
  Report Type: Report from Study
  Country: CA (occurrence: CA)
  Receive Date: 20220721
  Receipt Date: 20220721
  Transmission Date: 20221026
  Serious: Yes (Other)
  Sender: FDA-Public Use
  Company Number: CA-HLS-202200815

PATIENT
  Age: 58 Year
  Sex: Female

DRUGS (10)
  1. CLOZARIL [Suspect]
     Active Substance: CLOZAPINE
     Indication: Post-traumatic stress disorder
     Dosage: FROM SEVERAL YEARS
     Route: 048
     Dates: start: 20031022
  2. CLOZARIL [Suspect]
     Active Substance: CLOZAPINE
     Indication: Schizoaffective disorder bipolar type
     Dosage: FROM SEVERAL YEARS
     Route: 048
     Dates: start: 20031022
  3. Tearzosin [Concomitant]
     Indication: Product used for unknown indication
     Dosage: AT BEDTIME
     Route: 065
  4. QUETIAPINE [Concomitant]
     Active Substance: QUETIAPINE
     Indication: Product used for unknown indication
     Dosage: AT BEDTIME
     Route: 065
  5. PRAZOSIN [Concomitant]
     Active Substance: PRAZOSIN
     Indication: Product used for unknown indication
     Dosage: AT BEDTIME
     Route: 065
  6. LANSOPRAZOLE [Concomitant]
     Active Substance: LANSOPRAZOLE
     Indication: Product used for unknown indication
     Route: 065
  7. GABAPENTIN [Concomitant]
     Active Substance: GABAPENTIN
     Indication: Product used for unknown indication
     Dosage: THREE TIMES DAILY
     Route: 065
  8. ESCITALOPRAM [Concomitant]
     Active Substance: ESCITALOPRAM OXALATE
     Indication: Product used for unknown indication
     Route: 065
  9. ATORVASTATIN [Concomitant]
     Active Substance: ATORVASTATIN
     Indication: Product used for unknown indication
     Dosage: AT BEDTIME
     Route: 065
  10. DIVALPROEX SODIUM [Concomitant]
     Active Substance: DIVALPROEX SODIUM
     Indication: Seizure
     Dosage: TWICE DAILY
     Route: 065

REACTIONS (6)
  - Neutropenia [Unknown]
  - Neutrophil count decreased [Unknown]
  - Off label use [Unknown]
  - Transient ischaemic attack [Unknown]
  - Leukopenia [Unknown]
  - White blood cell count decreased [Unknown]

NARRATIVE: CASE EVENT DATE: 20210101
